FAERS Safety Report 7585364-2 (Version None)
Quarter: 2011Q3

REPORT INFORMATION
  Report Type: 
  Country: None (occurrence: None)
  Receive Date: 20110701
  Receipt Date: 20091119
  Transmission Date: 20111222
  Serious: Yes (Hospitalization, Other)
  Sender: FDA-Public Use
  Company Number: US-BAYER-200939995NA

PATIENT
  Age: 55 Year
  Sex: Male
  Weight: 42 kg

DRUGS (42)
  1. FENTANYL [Concomitant]
     Dosage: 1000 MCG
     Route: 042
     Dates: start: 20020403
  2. CALCIUM CHLORIDE [Concomitant]
     Dosage: 1000 MG, UNK
     Route: 042
     Dates: start: 20020403
  3. PLASMALYTE [GLUCOSE,POTASSIUM CHLORIDE] [Concomitant]
     Dosage: 1400 ML, (PRIME)
     Dates: start: 20020403
  4. PACKED RED BLOOD CELLS [Concomitant]
     Dosage: 2 U, UNK
     Route: 042
     Dates: start: 20020403, end: 20020403
  5. TRASYLOL [Suspect]
     Dosage: 500,000 UNK
     Route: 042
     Dates: start: 20020403, end: 20020403
  6. LOPRESSOR [Concomitant]
     Dosage: 25 MG, BID
  7. CORDARONE [Concomitant]
     Dosage: 200 MG, Q12H
  8. THIOPENTAL SODIUM [Concomitant]
     Dosage: 750 MG, UNK
     Route: 042
     Dates: start: 20020403
  9. MILRINONE [Concomitant]
     Dosage: 4.5 MG, UNK
     Route: 042
     Dates: start: 20020403
  10. DOBUTAMINE HCL [Concomitant]
     Dosage: 7.5 MCG/KG
     Route: 042
     Dates: start: 20020403
  11. SODIUM BICARBONATE [Concomitant]
     Dosage: 130/100 MEQ
     Route: 042
     Dates: start: 20020403
  12. PHENYLEPHRINE HCL [Concomitant]
     Dosage: 100 MG, UNK
     Route: 042
     Dates: start: 20020403
  13. CRYOPRECIPITATES [Concomitant]
     Dosage: 120 ML, UNK
     Route: 042
     Dates: start: 20020403, end: 20020403
  14. LEVAQUIN [Concomitant]
     Dosage: 250MG DAILY FOR 4 DAYS
  15. DILANTIN [Concomitant]
     Dosage: 200MG TID FOR RECURRENT SEIZURES
  16. TRASYLOL [Suspect]
     Indication: PRODUCT USED FOR UNKNOWN INDICATION
     Dosage: 200 ML, (PRIME)
     Route: 042
     Dates: start: 20020403, end: 20020403
  17. TRASYLOL [Suspect]
     Dosage: 500,000 UNK
     Route: 042
     Dates: start: 20020403, end: 20020403
  18. CARDIZEM CD [Concomitant]
     Dosage: 120 MG, QD
  19. MAGNESIUM SULFATE [Concomitant]
     Dosage: 2 G, UNK
     Route: 042
     Dates: start: 20020403
  20. COMBIVENT [Concomitant]
     Dosage: 4 PUFFS DAILY (INHALED)
     Route: 055
  21. ADVAIR DISKUS 100/50 [Concomitant]
     Dosage: 500/50
     Route: 048
  22. HEPARIN [Concomitant]
     Dosage: 39000 U, UNK
     Route: 042
     Dates: start: 20020403
  23. CEFUROXIME [Concomitant]
     Dosage: 3 G, UNK
     Route: 042
     Dates: start: 20020403
  24. WHOLE BLOOD [Concomitant]
     Dosage: 900 ML, UNK
     Route: 042
     Dates: start: 20020403, end: 20020403
  25. FRESH FROZEN PLASMA [Concomitant]
     Dosage: 864 ML, UNK
     Route: 042
     Dates: start: 20020403, end: 20020403
  26. TRASYLOL [Suspect]
     Indication: CARDIAC OPERATION
     Dosage: 4,000,000 UNK (LOADING DOSE)
     Route: 042
     Dates: start: 20020403, end: 20020403
  27. LIPITOR [Concomitant]
     Dosage: 10 MG, QD
     Route: 048
  28. PROTAMINE SULFATE [Concomitant]
     Dosage: 300 MG, UNK
     Route: 042
     Dates: start: 20020403
  29. MANNITOL [Concomitant]
     Dosage: 200 CC
     Route: 042
     Dates: start: 20020403
  30. FORANE [Concomitant]
     Dosage: UNK
     Dates: start: 20020403
  31. PLATELETS [Concomitant]
     Dosage: 564 ML, UNK
     Route: 042
     Dates: start: 20020403, end: 20020403
  32. OXYGEN [Concomitant]
     Dosage: 4 L BY NASAL CANNULA
     Route: 045
  33. COUMADIN [Concomitant]
     Dosage: 1 MG, QD
  34. CORGARD [Concomitant]
     Dosage: 200 MG, QD
     Route: 048
  35. PANCURONIUM [Concomitant]
     Dosage: 20 MG, UNK
     Route: 042
     Dates: start: 20020403
  36. PHENYLEPHRINE HCL [Concomitant]
     Dosage: 200 MCG
     Route: 042
  37. HESPAN IN EXCEL PLASTIC CONTAINER [Concomitant]
     Dosage: 500 ML,(PRIME)
     Dates: start: 20020403
  38. BACTRIM [Concomitant]
     Dosage: REGULAR STRENGTH DAILY FOR 3 DAYSUNK
  39. HEPARIN [Concomitant]
     Dosage: 10,000 UNITS
     Route: 042
     Dates: start: 20020403
  40. INSULIN [Concomitant]
     Dosage: 15 U, UNK
     Route: 042
     Dates: start: 20020403
  41. MANNITOL [Concomitant]
     Dosage: 100 ML, (PRIME)
     Route: 042
     Dates: start: 20020403
  42. SODIUM BICARBONATE [Concomitant]
     Dosage: 50 MEQ (PRIME)
     Dates: start: 20020403

REACTIONS (11)
  - STRESS [None]
  - RENAL IMPAIRMENT [None]
  - PAIN [None]
  - ANHEDONIA [None]
  - RENAL INJURY [None]
  - ANXIETY [None]
  - EMOTIONAL DISTRESS [None]
  - FEAR [None]
  - RENAL FAILURE [None]
  - UNEVALUABLE EVENT [None]
  - INJURY [None]
